FAERS Safety Report 20523093 (Version 1)
Quarter: 2022Q1

REPORT INFORMATION
  Report Type: Spontaneous
  Country: US (occurrence: US)
  Receive Date: 20220227
  Receipt Date: 20220227
  Transmission Date: 20220423
  Serious: No
  Sender: FDA-Public Use
  Company Number: US-JNJFOC-20220246822

PATIENT
  Age: 72 Year
  Sex: Female
  Weight: 66.4 kg

DRUGS (1)
  1. ULTRAM [Suspect]
     Active Substance: TRAMADOL HYDROCHLORIDE
     Indication: Product used for unknown indication
     Dosage: TAKE 1 TABLET (50 MG TOTAL) BY MOUTH EVERY 6 HOURS
     Route: 048
     Dates: start: 20180918, end: 20180922

REACTIONS (1)
  - Hypersensitivity [Unknown]
